FAERS Safety Report 13025990 (Version 1)
Quarter: 2016Q4

REPORT INFORMATION
  Report Type: Spontaneous
  Country: IT (occurrence: IT)
  Receive Date: 20161214
  Receipt Date: 20161214
  Transmission Date: 20170207
  Serious: Yes (Hospitalization)
  Sender: FDA-Public Use
  Company Number: IT-SA-2016SA223613

PATIENT
  Age: 68 Year
  Sex: Female

DRUGS (6)
  1. ARIMIDEX [Suspect]
     Active Substance: ANASTROZOLE
     Route: 065
  2. EZETIMIBE. [Suspect]
     Active Substance: EZETIMIBE
     Route: 065
  3. TAMOXIFEN CITRATE. [Suspect]
     Active Substance: TAMOXIFEN CITRATE
     Route: 065
  4. ZOPRANOL [Suspect]
     Active Substance: ZOFENOPRIL
     Route: 065
  5. ASA [Concomitant]
     Active Substance: ASPIRIN
  6. CLOPIDOGREL BISULFATE. [Suspect]
     Active Substance: CLOPIDOGREL BISULFATE
     Route: 065

REACTIONS (3)
  - Asthenia [Unknown]
  - Anaemia [Unknown]
  - Gait disturbance [Unknown]

NARRATIVE: CASE EVENT DATE: 20160404
